FAERS Safety Report 11411275 (Version 1)
Quarter: 2015Q3

REPORT INFORMATION
  Report Type: Spontaneous
  Country: US (occurrence: US)
  Receive Date: 20150821
  Receipt Date: 20150821
  Transmission Date: 20151125
  Serious: No
  Sender: FDA-Public Use
  Company Number: US-ELI_LILLY_AND_COMPANY-US201004007512

PATIENT
  Age: 84 Year
  Sex: Female

DRUGS (3)
  1. JANUMET [Concomitant]
     Active Substance: METFORMIN HYDROCHLORIDE\SITAGLIPTIN PHOSPHATE
  2. HUMULIN N [Suspect]
     Active Substance: INSULIN HUMAN
     Dosage: 30 U, EACH MORNING
  3. HUMULIN N [Suspect]
     Active Substance: INSULIN HUMAN
     Dosage: 10 U, OTHER

REACTIONS (2)
  - Product quality issue [Recovered/Resolved]
  - Poor quality drug administered [Recovered/Resolved]

NARRATIVE: CASE EVENT DATE: 201003
